FAERS Safety Report 6782514-2 (Version None)
Quarter: 2010Q2

REPORT INFORMATION
  Report Type: 
  Country: None (occurrence: None)
  Receive Date: 20100616
  Receipt Date: 20100602
  Transmission Date: 20101027
  Serious: Yes (Hospitalization)
  Sender: FDA-Public Use
  Company Number: 2010-2013

PATIENT
  Age: 69 Year
  Sex: Female

DRUGS (1)
  1. APO-GO AMPOULES (APO-GO) (AMPOMORPHINE HYDROCHLORIDE) (APOMORPHINE HYD [Suspect]
     Indication: DRUG USE FOR UNKNOWN INDICATION
     Dosage: CONTINUOUS FOR 24 HR/DAY, SUBCUTANEOUS
     Route: 058
     Dates: start: 20100101

REACTIONS (1)
  - MYOCARDIAL INFARCTION [None]
